FAERS Safety Report 7746855-4 (Version None)
Quarter: 2011Q3

REPORT INFORMATION
  Report Type: 
  Country: None (occurrence: None)
  Receive Date: 20110913
  Receipt Date: 20110908
  Transmission Date: 20111222
  Serious: Yes (Death, Hospitalization)
  Sender: FDA-Public Use
  Company Number: US-JNJFOC-20110904118

PATIENT
  Sex: Male
  Weight: 65.77 kg

DRUGS (1)
  1. ZYTIGA [Suspect]
     Indication: PROSTATE CANCER METASTATIC
     Dosage: STRENGTH: 250 MG
     Route: 048
     Dates: start: 20110701, end: 20110701

REACTIONS (10)
  - ASTHENIA [None]
  - MALAISE [None]
  - DYSPNOEA [None]
  - WEIGHT DECREASED [None]
  - KIDNEY ENLARGEMENT [None]
  - PROSTATE CANCER METASTATIC [None]
  - ABASIA [None]
  - SPEECH DISORDER [None]
  - DECREASED APPETITE [None]
  - PULMONARY EMBOLISM [None]
